FAERS Safety Report 15662340 (Version 1)
Quarter: 2018Q4

REPORT INFORMATION
  Report Type: Spontaneous
  Country: IT (occurrence: IT)
  Receive Date: 20181127
  Receipt Date: 20181127
  Transmission Date: 20190205
  Serious: Yes (Hospitalization)
  Sender: FDA-Public Use
  Company Number: PHHY2018IT166347

PATIENT
  Age: 16 Year
  Sex: Female

DRUGS (5)
  1. OKI [Suspect]
     Active Substance: KETOPROFEN LYSINE
     Indication: INTENTIONAL SELF-INJURY
     Dosage: 120 MG, UNK
     Route: 065
     Dates: start: 20181029, end: 20181029
  2. AMOXICILLIN+CLAVULANIC ACID [Suspect]
     Active Substance: AMOXICILLIN\CLAVULANIC ACID
     Indication: INTENTIONAL SELF-INJURY
     Dosage: 1 G, UNK
     Route: 048
     Dates: start: 20181029, end: 20181029
  3. AZITHROMYCIN ANHYDROUS. [Suspect]
     Active Substance: AZITHROMYCIN ANHYDROUS
     Indication: INTENTIONAL SELF-INJURY
     Dosage: 1500 MG, UNK
     Route: 048
     Dates: start: 20181029, end: 20181029
  4. PARACETAMOL [Suspect]
     Active Substance: ACETAMINOPHEN
     Indication: INTENTIONAL SELF-INJURY
     Dosage: 1000 MG, UNK
     Route: 048
     Dates: start: 20181029, end: 20181029
  5. NIMESULIDE [Suspect]
     Active Substance: NIMESULIDE
     Indication: INTENTIONAL SELF-INJURY
     Dosage: 1500 MG, UNK
     Route: 048
     Dates: start: 20181029, end: 20181029

REACTIONS (3)
  - Intentional self-injury [Recovered/Resolved]
  - Substance abuse [Recovered/Resolved]
  - Abdominal pain upper [Recovered/Resolved]

NARRATIVE: CASE EVENT DATE: 20181029
